FAERS Safety Report 9034022 (Version 1)
Quarter: 2013Q1

REPORT INFORMATION
  Report Type: Spontaneous
  Country: CA (occurrence: CA)
  Receive Date: 20130128
  Receipt Date: 20130128
  Transmission Date: 20140127
  Serious: Yes (Other)
  Sender: FDA-Public Use
  Company Number: CA-AMGEN-CANSP2012009593

PATIENT
  Age: 67 Year
  Sex: Female
  Weight: 45.35 kg

DRUGS (3)
  1. PROLIA [Suspect]
     Indication: OSTEOPOROSIS
     Dosage: 60 MG, Q6MO
     Route: 058
     Dates: start: 20110118
  2. VITAMIN D /00107901/ [Concomitant]
     Dosage: 2000 IU, QD
  3. CALCIUM [Concomitant]
     Dosage: UNK UNK, BID

REACTIONS (2)
  - Fracture delayed union [Not Recovered/Not Resolved]
  - Hand fracture [Not Recovered/Not Resolved]
